FAERS Safety Report 6657024-3 (Version None)
Quarter: 2010Q1

REPORT INFORMATION
  Report Type: 
  Country: None (occurrence: None)
  Receive Date: 20100329
  Receipt Date: 20100329
  Transmission Date: 20100710
  Serious: No
  Sender: FDA-Public Use
  Company Number: None

PATIENT
  Sex: Male
  Weight: 65.318 kg

DRUGS (1)
  1. VANCOMYCIN [Suspect]
     Indication: SINUSITIS
     Dosage: 1.25 GM Q8HRS IV
     Route: 042
     Dates: start: 20100309, end: 20100325

REACTIONS (2)
  - INFUSION RELATED REACTION [None]
  - RASH [None]
